FAERS Safety Report 4929703-7 (Version None)
Quarter: 2006Q1

REPORT INFORMATION
  Report Type: 
  Country: None (occurrence: None)
  Receive Date: 20060224
  Receipt Date: 20060215
  Transmission Date: 20060701
  Serious: Yes (Other)
  Sender: FDA-Public Use
  Company Number: 006665

PATIENT
  Age: 16 Year
  Sex: Female

DRUGS (1)
  1. CLARAVIS [Suspect]
     Indication: ACNE
     Dosage: 1 CAPS, QD, ORAL
     Route: 048
     Dates: start: 20060113, end: 20060213

REACTIONS (1)
  - MOOD SWINGS [None]
